FAERS Safety Report 4870557-5 (Version None)
Quarter: 2005Q4

REPORT INFORMATION
  Report Type: 
  Country: None (occurrence: None)
  Receive Date: 20051228
  Receipt Date: 20051216
  Transmission Date: 20060501
  Serious: Yes (Hospitalization)
  Sender: FDA-Public Use
  Company Number: KII-2005-0020344

PATIENT
  Age: 81 Year
  Sex: Female

DRUGS (2)
  1. OXYCONTIN [Suspect]
     Indication: WRONG DRUG ADMINISTERED
     Dosage: ORAL
     Route: 048
     Dates: start: 20051113
  2. OXYCODONE HCL [Suspect]
     Indication: SHOULDER PAIN
     Dosage: BID

REACTIONS (2)
  - DRUG DISPENSING ERROR [None]
  - WRONG DRUG ADMINISTERED [None]
